FAERS Safety Report 14173299 (Version 1)
Quarter: 2017Q4

REPORT INFORMATION
  Report Type: Spontaneous
  Country: US (occurrence: None)
  Receive Date: 20171109
  Receipt Date: 20171109
  Transmission Date: 20180321
  Serious: Yes (Hospitalization)
  Sender: FDA-Public Use
  Company Number: None

PATIENT
  Age: 3 Year
  Sex: Female
  Weight: 13.7 kg

DRUGS (7)
  1. LEUCOVORIN CALCIUM. [Suspect]
     Active Substance: LEUCOVORIN CALCIUM
     Dates: end: 20171104
  2. MERCAPTOPURINE. [Suspect]
     Active Substance: MERCAPTOPURINE
     Dates: end: 20171104
  3. DEXAMETHASONE. [Suspect]
     Active Substance: DEXAMETHASONE
     Dates: end: 20171011
  4. ONCASPAR [Suspect]
     Active Substance: PEGASPARGASE
     Dates: end: 20170916
  5. METHOTREXATE. [Suspect]
     Active Substance: METHOTREXATE
     Dates: end: 20171101
  6. CYTARABINE. [Suspect]
     Active Substance: CYTARABINE
     Dates: end: 20170913
  7. VINCRISTINE SULFATE. [Suspect]
     Active Substance: VINCRISTINE SULFATE
     Dates: end: 20171018

REACTIONS (15)
  - Sepsis [None]
  - Blood albumin decreased [None]
  - Pyrexia [None]
  - Hypertension [None]
  - Post procedural haematoma [None]
  - Depressed level of consciousness [None]
  - Febrile neutropenia [None]
  - Renal haematoma [None]
  - Application site rash [None]
  - Haemodialysis [None]
  - Tachycardia [None]
  - Hyponatraemia [None]
  - Respirovirus test positive [None]
  - Mucosal inflammation [None]
  - Acute kidney injury [None]

NARRATIVE: CASE EVENT DATE: 20171101
